FAERS Safety Report 11342761 (Version 2)
Quarter: 2015Q3

REPORT INFORMATION
  Report Type: Report from Study
  Country: CA (occurrence: CA)
  Receive Date: 20150805
  Receipt Date: 20150818
  Transmission Date: 20151125
  Serious: Yes (Other)
  Sender: FDA-Public Use
  Company Number: CA-ABBVIE-15K-028-1437510-00

PATIENT
  Age: 49 Year
  Sex: Male
  Weight: 88.53 kg

DRUGS (4)
  1. HUMIRA [Suspect]
     Active Substance: ADALIMUMAB
     Indication: PSORIASIS
     Route: 058
     Dates: start: 20090504, end: 201507
  2. TYLENOL [Concomitant]
     Active Substance: ACETAMINOPHEN
     Indication: BACK PAIN
     Dosage: 3
  3. HUMIRA [Suspect]
     Active Substance: ADALIMUMAB
     Route: 058
     Dates: start: 20150726
  4. PURINOL [Concomitant]
     Active Substance: ALLOPURINOL
     Indication: MIGRAINE

REACTIONS (2)
  - Tooth fracture [Recovered/Resolved]
  - Surgical procedure repeated [Recovered/Resolved]

NARRATIVE: CASE EVENT DATE: 201507
